FAERS Safety Report 8465418-9 (Version None)
Quarter: 2012Q2

REPORT INFORMATION
  Report Type: 
  Country: None (occurrence: None)
  Receive Date: 20120626
  Receipt Date: 20120618
  Transmission Date: 20120825
  Serious: Yes (Hospitalization)
  Sender: FDA-Public Use
  Company Number: US-BAYER-2012-061880

PATIENT
  Age: 43 Year
  Sex: Female
  Weight: 140.7 kg

DRUGS (43)
  1. DROSPIRENONE AND ETHINYL ESTRADIOL [Suspect]
     Dosage: UNK
  2. LYRICA [Concomitant]
     Dosage: 100 MG, TID
     Route: 048
     Dates: start: 20100725
  3. VITAMIN D [Concomitant]
     Dosage: 1600 MG, UNK
  4. CHLORTHALIDONE [Concomitant]
     Dosage: 25 MG, DAILY
     Dates: start: 20100730
  5. LOVAZA [Concomitant]
     Dosage: 2 G, BID
     Route: 048
     Dates: start: 20100725
  6. SIMCOR [Concomitant]
     Dosage: 1000/20, 2 TABLETS ONCE DAILY
     Route: 048
     Dates: start: 20100725
  7. AMLODIPINE [Concomitant]
     Dosage: FIVE ONCE DAILY, 1 TABLET MORNING.
     Route: 048
     Dates: start: 20100725
  8. CELEXA [Concomitant]
     Dosage: 60 MG, BID
     Dates: start: 20100730
  9. NEURONTIN [Concomitant]
     Dosage: 600 MG 2 TIMES PER DAY
     Route: 048
  10. OMEGA 3 ACID [Concomitant]
     Dosage: TWO
  11. STARLIX [Concomitant]
     Dosage: 120 MG, WITH MEALS
     Route: 048
     Dates: start: 20100730
  12. TRICOR [Concomitant]
     Dosage: 145 MG, HS
     Route: 048
     Dates: start: 20100725
  13. ZOLOFT [Concomitant]
     Dosage: 50, UNK, ONCE DAILY
     Route: 048
     Dates: start: 20100725
  14. ZOLOFT [Concomitant]
     Dosage: 50 MG, BID
     Route: 048
  15. VITAMIN D [Concomitant]
     Dosage: 4000 UNITS ONCE DAILY
     Route: 048
     Dates: start: 20100725
  16. SPIRONOLACTONE [Concomitant]
     Dosage: 50 ONCE DAILY
     Route: 048
     Dates: start: 20100725
  17. ASPIRIN [Concomitant]
     Dosage: 81 MG, DAILY
     Route: 048
     Dates: start: 20100725
  18. ZOCOR [Concomitant]
     Dosage: 20 MG, HS
     Route: 048
     Dates: start: 20100730
  19. YASMIN [Suspect]
     Dosage: UNK
  20. AVANDAMET [Concomitant]
     Dosage: 4 MG/500, BID
     Route: 048
     Dates: start: 20100725
  21. LANTUS [Concomitant]
     Dosage: 55 UNITS TWICE DAILY
     Dates: start: 20100725
  22. LANTUS [Concomitant]
     Dosage: 55 UNITS
     Route: 058
  23. NATEGLINIDE [Concomitant]
     Dosage: 120 MG, A.C. (BEFORE MEALS)
     Route: 048
     Dates: start: 20100725
  24. FAMOTIDINE [Concomitant]
     Dosage: 20 MG, Q 12H (EVERY 12 HOURS)
     Route: 048
     Dates: start: 20100730
  25. CYMBALTA [Concomitant]
     Dosage: 60 MG, DAILY
     Route: 048
     Dates: start: 20100725
  26. AVANDAMET [Concomitant]
     Dosage: 4/1000 MG
     Route: 048
  27. LORTAB [Concomitant]
     Dosage: 7.5 Q 4 H AS NEEDED
     Dates: start: 20100725
  28. CALCIUM [Concomitant]
     Dosage: 1200 MG, ONCE DAILY
     Route: 048
     Dates: start: 20100725
  29. AMITRIPTYLINE HCL [Concomitant]
     Dosage: 150 MG, HS
     Route: 048
     Dates: start: 20100725
  30. NORVASC [Concomitant]
     Dosage: 5 MG, UNK
     Route: 048
     Dates: start: 20100730
  31. CALCIUM WITH VITAMIN D [Concomitant]
     Dosage: 600 MG, BID
     Route: 048
     Dates: start: 20100730
  32. OMEGA 3 ACID [Concomitant]
     Dosage: TWO Q12 HOURS
     Route: 048
     Dates: start: 20100730
  33. ATENOLOL AND CHLORTHALIDONE [Concomitant]
     Dosage: 50/25, 1 TABLET MORNING
     Route: 048
     Dates: start: 20100725
  34. NOVOLOG [Concomitant]
     Dosage: PER SLIDING SCALE
     Dates: start: 20100725
  35. ZOLOFT [Concomitant]
     Dosage: 50 MG, DAILY
  36. SYMLIN PEN 120 [Concomitant]
     Dosage: 120 ML, BEFORE MEALS
     Route: 058
     Dates: start: 20100725
  37. NIACIN [Concomitant]
     Dosage: 1000 MG, HS
     Route: 048
     Dates: start: 20100730
  38. TRICOR [Concomitant]
     Dosage: 145 MG, DAILY
     Route: 048
  39. PRILOSEC [Concomitant]
     Dosage: 40, UNK, ONCE DAILY
     Dates: start: 20100725
  40. SPIRONOLACTONE [Concomitant]
     Dosage: 50 MG, DAILY
     Dates: start: 20100730
  41. VITAMIN D [Concomitant]
     Dosage: 1000 MG, WITH MEALS
  42. ASPIRIN [Concomitant]
     Dosage: 325 MG, ONCE DAILY
     Route: 048
     Dates: start: 20100725
  43. ATENOLOL [Concomitant]
     Dosage: 50 MG, DAILY
     Route: 048
     Dates: start: 20100730

REACTIONS (2)
  - DEEP VEIN THROMBOSIS [None]
  - PULMONARY EMBOLISM [None]
